FAERS Safety Report 17188052 (Version 1)
Quarter: 2019Q4

REPORT INFORMATION
  Report Type: Spontaneous
  Country: GB (occurrence: GB)
  Receive Date: 20191221
  Receipt Date: 20191221
  Transmission Date: 20200122
  Serious: Yes (Disabling, Other)
  Sender: FDA-Public Use
  Company Number: GB-ACCORD-166034

PATIENT
  Age: 67 Year
  Sex: Female
  Weight: 64.41 kg

DRUGS (8)
  1. FLUAD NOS [Interacting]
     Active Substance: INFLUENZA VIRUS VACCINE
     Indication: INFLUENZA IMMUNISATION
     Dosage: STANDARD VOLUME/CONCENTRATION.
     Route: 051
     Dates: start: 20191008, end: 20191008
  2. FOLIC ACID. [Concomitant]
     Active Substance: FOLIC ACID
  3. THYROXINE [Concomitant]
     Active Substance: LEVOTHYROXINE
  4. METHOTREXATE. [Suspect]
     Active Substance: METHOTREXATE
     Indication: RHEUMATOID ARTHRITIS
  5. COLECALCIFEROL [Concomitant]
     Active Substance: CHOLECALCIFEROL
  6. OMEPRAZOLE. [Concomitant]
     Active Substance: OMEPRAZOLE
  7. CANDESARTAN. [Concomitant]
     Active Substance: CANDESARTAN
  8. LERCANIDIPINE [Concomitant]
     Active Substance: LERCANIDIPINE

REACTIONS (6)
  - Musculoskeletal stiffness [Unknown]
  - Rheumatoid arthritis [Unknown]
  - Medication error [Unknown]
  - Arthralgia [Unknown]
  - Drug interaction [Unknown]
  - Fatigue [Not Recovered/Not Resolved]

NARRATIVE: CASE EVENT DATE: 20191008
